FAERS Safety Report 5774409-8 (Version None)
Quarter: 2008Q2

REPORT INFORMATION
  Report Type: 
  Country: None (occurrence: None)
  Receive Date: 20080616
  Receipt Date: 20080605
  Transmission Date: 20081010
  Serious: Yes (Death)
  Sender: FDA-Public Use
  Company Number: AU-PFIZER INC-2008033904

PATIENT
  Sex: Female

DRUGS (2)
  1. SUTENT [Suspect]
     Indication: RENAL CELL CARCINOMA
     Route: 048
  2. XELODA [Concomitant]
     Indication: BREAST CANCER
     Route: 048

REACTIONS (2)
  - BREAST CANCER [None]
  - NEOPLASM MALIGNANT [None]
